FAERS Safety Report 9035436 (Version 1)
Quarter: 2013Q1

REPORT INFORMATION
  Report Type: Spontaneous
  Country: US (occurrence: US)
  Receive Date: 20130129
  Receipt Date: 20130129
  Transmission Date: 20140127
  Serious: No
  Sender: FDA-Public Use
  Company Number: US-ABBOTT-12P-163-0890589-00

PATIENT
  Sex: Female
  Weight: 57.66 kg

DRUGS (4)
  1. HUMIRA 40 MG/0.8 ML PEN [Suspect]
     Indication: CROHN^S DISEASE
     Dates: start: 200908
  2. IRON [Concomitant]
     Indication: MINERAL SUPPLEMENTATION
  3. CALCIUM [Concomitant]
     Indication: MINERAL SUPPLEMENTATION
  4. UNKNOWN ORAL CONTRACEPTIVE PILL [Concomitant]
     Indication: CONTRACEPTION

REACTIONS (2)
  - Keratitis [Recovered/Resolved]
  - Dermatitis acneiform [Recovering/Resolving]
